FAERS Safety Report 9202222 (Version 1)
Quarter: 2013Q1

REPORT INFORMATION
  Report Type: Spontaneous
  Country: US (occurrence: None)
  Receive Date: 20130326
  Receipt Date: 20130326
  Transmission Date: 20140127
  Serious: Yes (Hospitalization)
  Sender: FDA-Public Use
  Company Number: E2B_00000677

PATIENT
  Age: 72 Year
  Sex: Male

DRUGS (2)
  1. LISINOPRIL [Suspect]
     Indication: HYPERTENSION
     Route: 048
     Dates: end: 20121011
  2. CIPROFLOXACIN (TABLETS) [Concomitant]

REACTIONS (5)
  - Vomiting [None]
  - Thrombosis [None]
  - Spleen disorder [None]
  - Pancreatitis acute [None]
  - Fatigue [None]
